FAERS Safety Report 18772422 (Version 1)
Quarter: 2021Q1

REPORT INFORMATION
  Report Type: Spontaneous
  Country: US (occurrence: US)
  Receive Date: 20210121
  Receipt Date: 20210121
  Transmission Date: 20210419
  Serious: No
  Sender: FDA-Public Use
  Company Number: US-BRACCO-2020US05290

PATIENT
  Sex: Female

DRUGS (1)
  1. TAGITOL V [Suspect]
     Active Substance: BARIUM SULFATE
     Indication: COLONOSCOPY
     Route: 048

REACTIONS (1)
  - Intentional product misuse [Unknown]
